FAERS Safety Report 14123989 (Version 2)
Quarter: 2017Q4

REPORT INFORMATION
  Report Type: Spontaneous
  Country: CH (occurrence: CH)
  Receive Date: 20171025
  Receipt Date: 20171103
  Transmission Date: 20180321
  Serious: Yes (Death, Other)
  Sender: FDA-Public Use
  Company Number: CH-PFIZER INC-2017457621

PATIENT
  Age: 75 Year
  Sex: Male
  Weight: 66 kg

DRUGS (20)
  1. MABTHERA [Suspect]
     Active Substance: RITUXIMAB
     Indication: THERAPEUTIC PROCEDURE
     Dosage: UNK
     Route: 051
     Dates: start: 20170825, end: 20170825
  2. TOREM /01036501/ [Concomitant]
     Active Substance: TORSEMIDE
     Dosage: 200 MG, UNK
     Dates: start: 20170923, end: 20171006
  3. DIALVIT [Concomitant]
     Dosage: UNK
     Dates: start: 20170925
  4. TOREM /01036501/ [Concomitant]
     Active Substance: TORSEMIDE
     Dosage: 50 MG, QD
     Dates: start: 20170919
  5. FRAGMIN [Concomitant]
     Active Substance: DALTEPARIN SODIUM
     Dosage: UNK
     Dates: start: 20170918, end: 20171006
  6. PREDNISONE ACETATE [Concomitant]
     Active Substance: PREDNISONE ACETATE
     Dosage: UNK
     Dates: start: 20170918, end: 20170925
  7. PANTOZOL [Suspect]
     Active Substance: PANTOPRAZOLE SODIUM
     Indication: PROPHYLAXIS
     Dosage: UNK
     Route: 048
     Dates: start: 20170919, end: 20171006
  8. NOVALGIN [Suspect]
     Active Substance: METAMIZOLE SODIUM
     Dosage: 4 G, UNK
     Route: 048
     Dates: start: 20170924
  9. TEMGESIC [Concomitant]
     Active Substance: BUPRENORPHINE HYDROCHLORIDE
     Dosage: UNK
     Route: 060
     Dates: start: 20170925, end: 20171006
  10. METOLAZON [Concomitant]
     Active Substance: METOLAZONE
     Dosage: UNK
     Dates: start: 20170922, end: 20170925
  11. CELLCEPT [Suspect]
     Active Substance: MYCOPHENOLATE MOFETIL\MYCOPHENOLATE MOFETIL HYDROCHLORIDE
     Indication: THERAPEUTIC PROCEDURE
     Dosage: UNK
     Route: 048
     Dates: start: 20170911, end: 20170925
  12. ROCALTROL [Concomitant]
     Active Substance: CALCITRIOL
     Dosage: UNK
     Route: 048
     Dates: start: 20170925
  13. FERINJECT [Concomitant]
     Active Substance: FERRIC CARBOXYMALTOSE
     Dosage: UNK
     Dates: start: 20171003, end: 20171005
  14. ARANESP [Concomitant]
     Active Substance: DARBEPOETIN ALFA
     Dosage: UNK
     Dates: start: 20171003, end: 20171003
  15. MABTHERA [Concomitant]
     Active Substance: RITUXIMAB
     Dosage: UNK UNK, QD
     Dates: start: 20170825
  16. MAGNESIOCARD [Concomitant]
     Active Substance: MAGNESIUM ASPARTATE HYDROCHLORIDE
     Dosage: UNK
     Dates: end: 20171006
  17. NOVALGIN [Suspect]
     Active Substance: METAMIZOLE SODIUM
     Indication: FRACTURE PAIN
     Dosage: 500 G, QD
     Route: 048
     Dates: start: 20170923, end: 20171006
  18. DAFALGAN [Suspect]
     Active Substance: ACETAMINOPHEN
     Indication: FRACTURE PAIN
     Dosage: 500 MG, QOD
     Route: 048
     Dates: start: 20170923, end: 20171006
  19. TOREM /01036501/ [Concomitant]
     Active Substance: TORSEMIDE
     Dosage: 100 MG, QD
     Dates: start: 20170921
  20. PROGRAF [Concomitant]
     Active Substance: TACROLIMUS\TACROLIMUS ANHYDROUS
     Dosage: UNK
     Dates: start: 20170911, end: 20170925

REACTIONS (3)
  - Neutrophil count decreased [Fatal]
  - Septic shock [Fatal]
  - Agranulocytosis [Fatal]

NARRATIVE: CASE EVENT DATE: 201709
